FAERS Safety Report 10017192 (Version 1)
Quarter: 2014Q1

REPORT INFORMATION
  Report Type: Spontaneous
  Country: US (occurrence: US)
  Receive Date: 20140318
  Receipt Date: 20140318
  Transmission Date: 20141002
  Serious: Yes (Death)
  Sender: FDA-Public Use
  Company Number: US-GE HEALTHCARE MEDICAL DIAGNOSTICS-OSCN-PR-0902S-0061

PATIENT
  Sex: Male

DRUGS (22)
  1. GADOLINIUM (UNSPECIFIED) [Suspect]
     Indication: PRODUCT USED FOR UNKNOWN INDICATION
     Route: 042
     Dates: start: 20061207, end: 20061207
  2. GADOLINIUM (UNSPECIFIED) [Suspect]
     Indication: CELLULITIS
     Route: 042
     Dates: start: 20061208, end: 20061208
  3. GADOLINIUM (UNSPECIFIED) [Suspect]
     Indication: PRODUCT USED FOR UNKNOWN INDICATION
     Route: 042
     Dates: start: 20070215, end: 20070215
  4. GADOLINIUM (UNSPECIFIED) [Suspect]
     Indication: PRODUCT USED FOR UNKNOWN INDICATION
     Route: 042
     Dates: start: 20070306, end: 20070306
  5. RENAGEL [Concomitant]
  6. FUROSEMIDE [Concomitant]
  7. LANTUS [Concomitant]
  8. HUMALOG [Concomitant]
  9. NEUROTIN [Concomitant]
  10. EPOGEN [Concomitant]
  11. REQUIP [Concomitant]
  12. COUMADIN [Concomitant]
  13. PROCRIT [Concomitant]
  14. FOSRENOL [Concomitant]
  15. ARANESP [Concomitant]
  16. PHOSLO [Concomitant]
  17. METHAMPHETAMINE [Concomitant]
  18. METOPROLOL [Concomitant]
  19. CLONIDINE [Concomitant]
  20. AMLOPDIPINE [Concomitant]
  21. BENAZEPRIL [Concomitant]
  22. NITROGLYCERIN [Concomitant]

REACTIONS (1)
  - Nephrogenic systemic fibrosis [Fatal]
